FAERS Safety Report 5410809-3 (Version None)
Quarter: 2007Q3

REPORT INFORMATION
  Report Type: 
  Country: None (occurrence: None)
  Receive Date: 20070810
  Receipt Date: 20070808
  Transmission Date: 20080115
  Serious: Yes (Life-Threatening, Hospitalization)
  Sender: FDA-Public Use
  Company Number: PHFR2006GB02496

PATIENT
  Age: 37 Year
  Sex: Female

DRUGS (8)
  1. ZOPICLONE [Suspect]
     Indication: HYPNOTHERAPY
     Dosage: 7.5 MG/DAY
     Route: 048
     Dates: start: 20050311, end: 20060501
  2. ZAPONEX [Suspect]
     Dosage: UNK, UNK
  3. HYDROCORTISONE [Concomitant]
  4. OMEPRAZOLE [Concomitant]
     Dosage: 20 MG/DAY
     Dates: start: 20050101
  5. RISPERDAL [Concomitant]
     Indication: PSYCHOTIC DISORDER
     Dosage: 2 MG/DAY
     Dates: start: 20060501
  6. VENLAFAXINE HCL [Concomitant]
     Indication: DEPRESSION
     Dosage: 150 MG/DAY
     Dates: start: 20050101
  7. CLOZAPINE [Suspect]
     Dosage: UNK, UNK
     Route: 048
     Dates: start: 20050511, end: 20060501
  8. CLOZAPINE [Suspect]
     Dosage: AT LEAST 800MG
     Route: 048
     Dates: start: 20060505

REACTIONS (3)
  - COORDINATION ABNORMAL [None]
  - LOSS OF CONSCIOUSNESS [None]
  - OVERDOSE [None]
